FAERS Safety Report 5884300-4 (Version None)
Quarter: 2008Q3

REPORT INFORMATION
  Report Type: 
  Country: None (occurrence: None)
  Receive Date: 20080915
  Receipt Date: 20080902
  Transmission Date: 20090109
  Serious: Yes (Hospitalization)
  Sender: FDA-Public Use
  Company Number: PHHO1996CA04903

PATIENT
  Sex: Female
  Weight: 46 kg

DRUGS (17)
  1. NEORAL [Suspect]
     Route: 048
     Dates: start: 19960820
  2. IMURAN [Suspect]
     Route: 048
     Dates: start: 19960818, end: 19960818
  3. IMURAN [Suspect]
     Route: 048
     Dates: start: 19960820, end: 19960915
  4. IMURAN [Suspect]
     Route: 048
     Dates: start: 19960916
  5. IMURAN [Suspect]
     Route: 048
     Dates: start: 19960820, end: 19960915
  6. IMURAN [Suspect]
     Route: 048
     Dates: start: 19960916
  7. PREDNISONE TAB [Suspect]
     Route: 048
     Dates: start: 19960820, end: 19960820
  8. PREDNISONE TAB [Suspect]
     Route: 048
     Dates: start: 19960821, end: 19960822
  9. PREDNISONE TAB [Suspect]
     Route: 048
     Dates: start: 19960823, end: 19960824
  10. PREDNISONE TAB [Suspect]
     Route: 048
     Dates: start: 19960825, end: 19960826
  11. PREDNISONE TAB [Suspect]
     Route: 048
     Dates: start: 19960827, end: 19960828
  12. PREDNISONE TAB [Suspect]
     Route: 048
     Dates: start: 19960829, end: 19960830
  13. PREDNISONE TAB [Suspect]
     Route: 048
     Dates: start: 19960831, end: 19960901
  14. PREDNISONE TAB [Suspect]
     Route: 048
     Dates: start: 19960902, end: 19960903
  15. PREDNISONE TAB [Suspect]
     Route: 048
     Dates: start: 19960904, end: 19960905
  16. PREDNISONE TAB [Suspect]
     Route: 048
     Dates: start: 19960907
  17. PREDNISONE TAB [Suspect]
     Route: 048
     Dates: start: 19960906, end: 19960906

REACTIONS (1)
  - PNEUMONIA [None]
